FAERS Safety Report 7399800-8 (Version None)
Quarter: 2011Q2

REPORT INFORMATION
  Report Type: 
  Country: None (occurrence: None)
  Receive Date: 20110407
  Receipt Date: 20110405
  Transmission Date: 20111010
  Serious: Yes (Life-Threatening)
  Sender: FDA-Public Use
  Company Number: AT-ROCHE-769262

PATIENT

DRUGS (6)
  1. ENOXAPARIN SODIUM [Concomitant]
     Indication: DEEP VEIN THROMBOSIS
     Dates: start: 20100720
  2. LISINOCOMP [Concomitant]
     Dosage: TDD :10 MG/12.5 MG
     Route: 048
  3. AVASTIN [Suspect]
     Route: 042
     Dates: start: 20100809
  4. SPIRIVA [Concomitant]
     Dosage: DOSE : 18 MICROGRAM
     Route: 055
     Dates: start: 20100825
  5. SERETIDE [Concomitant]
     Route: 055
     Dates: start: 20100825
  6. PANTOPRAZOLE SODIUM [Concomitant]
     Dates: start: 20100825

REACTIONS (1)
  - PNEUMOTHORAX [None]
